FAERS Safety Report 6666676-3 (Version None)
Quarter: 2010Q2

REPORT INFORMATION
  Report Type: 
  Country: None (occurrence: None)
  Receive Date: 20100405
  Receipt Date: 20100305
  Transmission Date: 20101027
  Serious: No
  Sender: FDA-Public Use
  Company Number: 2007BI001231

PATIENT
  Age: 51 Year
  Sex: Female

DRUGS (4)
  1. TYSABRI [Suspect]
     Indication: MULTIPLE SCLEROSIS
     Route: 042
     Dates: start: 20061206, end: 20070122
  2. PROVIGIL [Concomitant]
  3. HYZAAR [Concomitant]
  4. EFFEXOR [Concomitant]

REACTIONS (2)
  - ERYTHEMA [None]
  - HYPERSENSITIVITY [None]
